FAERS Safety Report 14146189 (Version 3)
Quarter: 2017Q4

REPORT INFORMATION
  Report Type: Spontaneous
  Country: GB (occurrence: GB)
  Receive Date: 20171031
  Receipt Date: 20171229
  Transmission Date: 20180321
  Serious: No
  Sender: FDA-Public Use
  Company Number: GB-JNJFOC-20171032879

PATIENT
  Age: 58 Year
  Sex: Female

DRUGS (4)
  1. DENOSUMAB [Suspect]
     Active Substance: DENOSUMAB
     Indication: LEIOMYOSARCOMA METASTATIC
     Route: 065
  2. METFORMIN [Concomitant]
     Active Substance: METFORMIN HYDROCHLORIDE
     Indication: DIABETES MELLITUS
     Route: 065
  3. TRABECTEDIN [Suspect]
     Active Substance: TRABECTEDIN
     Indication: LEIOMYOSARCOMA METASTATIC
     Dosage: CYCLE 1-CYCLE 2
     Route: 042
     Dates: start: 20170604, end: 20170628
  4. TRABECTEDIN [Suspect]
     Active Substance: TRABECTEDIN
     Indication: LEIOMYOSARCOMA METASTATIC
     Dosage: CYCLE 3-CYCLE 4
     Route: 042
     Dates: start: 20170719, end: 20170809

REACTIONS (4)
  - Hypophosphataemia [Unknown]
  - Hypertransaminasaemia [Unknown]
  - Blood alkaline phosphatase increased [Unknown]
  - Hypocalcaemia [Unknown]
